FAERS Safety Report 8340848 (Version 3)
Quarter: 2012Q4

REPORT INFORMATION
  Report Type: 
  Country: FR (occurrence: FR)
  Receive Date: 20120118
  Receipt Date: 20121031
  Transmission Date: 20130627
  Serious: Yes (Hospitalization, Other)
  Sender: FDA-Public Use
  Company Number: FR-BRISTOL-MYERS SQUIBB COMPANY-15843311

PATIENT
  Age: 29 Year
  Sex: Female
  Weight: 63 kg

DRUGS (4)
  1. REYATAZ CAPS 300 MG [Suspect]
     Indication: HIV INFECTION
     Dates: start: 20081103
  2. NORVIR [Suspect]
     Dates: start: 20110523
  3. PREZISTA [Suspect]
     Dates: start: 20110523
  4. TRUVADA [Suspect]
     Dates: start: 20110523

REACTIONS (4)
  - Abortion spontaneous [Unknown]
  - Pregnancy [Recovered/Resolved]
  - Cholelithiasis [Not Recovered/Not Resolved]
  - Pyrexia [Unknown]
